FAERS Safety Report 23397017 (Version 1)
Quarter: 2024Q1

REPORT INFORMATION
  Report Type: Spontaneous
  Country: US (occurrence: None)
  Receive Date: 20240112
  Receipt Date: 20240112
  Transmission Date: 20240409
  Serious: Yes (Hospitalization)
  Sender: FDA-Public Use
  Company Number: None

PATIENT
  Age: 19 Year
  Sex: Male
  Weight: 92.3 kg

DRUGS (5)
  1. CALASPARGASE PEGOL-MKNL [Suspect]
     Active Substance: CALASPARGASE PEGOL-MKNL
     Dates: end: 20231230
  2. METHOTREXATE [Suspect]
     Active Substance: METHOTREXATE
     Dosage: FREQUENCY : AS DIRECTED;?
     Dates: end: 20231215
  3. GLEEVEC [Suspect]
     Active Substance: IMATINIB MESYLATE
     Dosage: FREQUENCY : TWICE A DAY;?
     Dates: start: 20231206, end: 20240107
  4. VINCRISTINE SULFATE [Suspect]
     Active Substance: VINCRISTINE SULFATE
     Dates: end: 20231229
  5. VINCRISTINE SULFATE [Suspect]
     Active Substance: VINCRISTINE SULFATE

REACTIONS (2)
  - Osteomyelitis [None]
  - Therapy cessation [None]

NARRATIVE: CASE EVENT DATE: 20240107
